FAERS Safety Report 12967639 (Version 1)
Quarter: 2016Q4

REPORT INFORMATION
  Report Type: Spontaneous
  Country: PL (occurrence: PL)
  Receive Date: 20161123
  Receipt Date: 20161123
  Transmission Date: 20170207
  Serious: Yes (Life-Threatening, Hospitalization)
  Sender: FDA-Public Use
  Company Number: PHHY2016PL159459

PATIENT
  Age: 16 Year
  Sex: Male
  Weight: 86 kg

DRUGS (3)
  1. CONVULEX [Suspect]
     Active Substance: VALPROIC ACID
     Dosage: 500 MG, UNK
     Route: 048
     Dates: start: 20160527, end: 20160527
  2. TEGRETOL [Suspect]
     Active Substance: CARBAMAZEPINE
     Indication: AFFECTIVE DISORDER
     Dosage: 200 MG, UNK
     Route: 048
     Dates: start: 20160527, end: 20160527
  3. CONVULEX [Suspect]
     Active Substance: VALPROIC ACID
     Indication: AFFECTIVE DISORDER
     Dosage: 300 MG, UNK
     Route: 048
     Dates: start: 20160527, end: 20160527

REACTIONS (1)
  - Pancreatitis acute [Recovering/Resolving]

NARRATIVE: CASE EVENT DATE: 20160529
